FAERS Safety Report 6892443-1 (Version None)
Quarter: 2010Q3

REPORT INFORMATION
  Report Type: 
  Country: None (occurrence: None)
  Receive Date: 20100731
  Receipt Date: 20080523
  Transmission Date: 20110219
  Serious: No
  Sender: FDA-Public Use
  Company Number: US-PFIZER INC-2007071780

PATIENT
  Sex: Female
  Weight: 68.04 kg

DRUGS (7)
  1. NORVASC [Suspect]
     Indication: HYPERTENSION
     Route: 048
     Dates: start: 20070101
  2. VALSARTAN [Suspect]
     Indication: HYPERTENSION
     Dates: start: 20070601
  3. ERYTHROMYCIN [Concomitant]
  4. ACETYLSALICYLIC ACID SRT [Concomitant]
  5. LEVOTHYROXINE SODIUM [Concomitant]
     Indication: HYPOTHYROIDISM
  6. DUONEB [Concomitant]
  7. AVAPRO [Concomitant]

REACTIONS (13)
  - BALANCE DISORDER [None]
  - BLOOD POTASSIUM INCREASED [None]
  - BLOOD SODIUM DECREASED [None]
  - CHEST PAIN [None]
  - DIZZINESS [None]
  - DRY MOUTH [None]
  - DRY SKIN [None]
  - FLATULENCE [None]
  - MUSCLE SPASMS [None]
  - OEDEMA PERIPHERAL [None]
  - POLLAKIURIA [None]
  - TREMOR [None]
  - VISION BLURRED [None]
